FAERS Safety Report 23021340 (Version 1)
Quarter: 2023Q4

REPORT INFORMATION
  Report Type: Spontaneous
  Country: US (occurrence: US)
  Receive Date: 20231003
  Receipt Date: 20231003
  Transmission Date: 20240110
  Serious: No
  Sender: FDA-Public Use
  Company Number: US-SANDOZ-SDZ2023US036569

PATIENT
  Sex: Female

DRUGS (1)
  1. RECLAST [Suspect]
     Active Substance: ZOLEDRONIC ACID
     Indication: Product used for unknown indication
     Route: 065

REACTIONS (7)
  - Vomiting [Unknown]
  - Diarrhoea [Unknown]
  - Gait disturbance [Unknown]
  - Gingival pain [Unknown]
  - Decreased appetite [Unknown]
  - Weight decreased [Unknown]
  - Knee deformity [Unknown]
